FAERS Safety Report 11381934 (Version 2)
Quarter: 2015Q3

REPORT INFORMATION
  Report Type: Spontaneous
  Country: DE (occurrence: DE)
  Receive Date: 20150814
  Receipt Date: 20150819
  Transmission Date: 20151125
  Serious: Yes (Hospitalization, Other)
  Sender: FDA-Public Use
  Company Number: DE-009507513-1508DEU003239

PATIENT
  Age: 84 Year
  Sex: Female

DRUGS (8)
  1. REMERGIL [Suspect]
     Active Substance: MIRTAZAPINE
     Dosage: 30 MG, ONCE A DAY
     Route: 048
     Dates: start: 200001, end: 20040928
  2. REMERGIL [Suspect]
     Active Substance: MIRTAZAPINE
     Dosage: 45 MG, ONCE A DAY
     Route: 048
     Dates: start: 20040923, end: 20040930
  3. HYPNOREX [Concomitant]
     Active Substance: LITHIUM CARBONATE
     Dosage: 200 MG,  ONCE A DAY
     Route: 048
     Dates: start: 200406, end: 20041018
  4. PLANUM (TEMAZEPAM) [Concomitant]
     Dosage: 20 MG, QD
     Route: 048
     Dates: start: 20041009
  5. REMERGIL [Suspect]
     Active Substance: MIRTAZAPINE
     Dosage: 60 MG, ONCE A DAY
     Route: 048
     Dates: start: 20041001
  6. LAMICTAL [Concomitant]
     Active Substance: LAMOTRIGINE
     Dosage: 12.5 MG, QD
     Route: 048
     Dates: start: 20041020
  7. TREVILOR RETARD [Concomitant]
     Active Substance: VENLAFAXINE HYDROCHLORIDE
     Dosage: 75 MG, QD
     Route: 048
     Dates: start: 20041008
  8. HYPNOREX [Concomitant]
     Active Substance: LITHIUM CARBONATE
     Dosage: 400 MG,  ONCE A DAY
     Route: 048
     Dates: start: 199312, end: 200406

REACTIONS (2)
  - Pulmonary embolism [Recovered/Resolved]
  - Deep vein thrombosis [Recovered/Resolved]

NARRATIVE: CASE EVENT DATE: 20041025
